FAERS Safety Report 9831144 (Version 1)
Quarter: 2014Q1

REPORT INFORMATION
  Report Type: Spontaneous
  Country: US (occurrence: US)
  Receive Date: 20140121
  Receipt Date: 20140121
  Transmission Date: 20141002
  Serious: No
  Sender: FDA-Public Use
  Company Number: -SAAVPROD-CLOF-1002702

PATIENT
  Age: 57 Year
  Sex: Female

DRUGS (1)
  1. CLOFARABINE [Suspect]
     Indication: ACUTE MYELOID LEUKAEMIA
     Dosage: 80 MG, ONCE
     Route: 065
     Dates: start: 20130625, end: 20130625

REACTIONS (1)
  - Drug administration error [Unknown]
